FAERS Safety Report 15885665 (Version 1)
Quarter: 2019Q1

REPORT INFORMATION
  Report Type: Spontaneous
  Country: CA (occurrence: CA)
  Receive Date: 20190129
  Receipt Date: 20190129
  Transmission Date: 20190417
  Serious: Yes (Other)
  Sender: FDA-Public Use
  Company Number: CA-009507513-1901CAN009251

PATIENT
  Age: 4 Year
  Sex: Male

DRUGS (1)
  1. ZENHALE [Suspect]
     Active Substance: FORMOTEROL FUMARATE\MOMETASONE FUROATE
     Indication: ASTHMA
     Dosage: UNK

REACTIONS (4)
  - Product dose omission [Unknown]
  - Asthmatic crisis [Unknown]
  - Product administered to patient of inappropriate age [Unknown]
  - Product quality issue [Unknown]
